FAERS Safety Report 24956705 (Version 4)
Quarter: 2025Q3

REPORT INFORMATION
  Report Type: Spontaneous
  Country: US (occurrence: US)
  Receive Date: 20250211
  Receipt Date: 20250710
  Transmission Date: 20251021
  Serious: No
  Sender: PFIZER
  Company Number: US-PFIZER INC-PV202500015185

PATIENT
  Age: 11 Year
  Sex: Male
  Weight: 28.6 kg

DRUGS (1)
  1. GENOTROPIN [Suspect]
     Active Substance: SOMATROPIN
     Indication: Short stature
     Dosage: 0.8 MG/DAY 7 DAYS/WEEK

REACTIONS (2)
  - Blood immunoglobulin A decreased [Unknown]
  - Dehydroepiandrosterone increased [Unknown]

NARRATIVE: CASE EVENT DATE: 20241126
